FAERS Safety Report 6870747-6 (Version None)
Quarter: 2010Q3

REPORT INFORMATION
  Report Type: 
  Country: None (occurrence: None)
  Receive Date: 20100721
  Receipt Date: 20100708
  Transmission Date: 20110219
  Serious: Yes (Hospitalization)
  Sender: FDA-Public Use
  Company Number: CTI_01212_2010

PATIENT
  Age: 72 Year
  Sex: Female

DRUGS (1)
  1. MEIACT (MEIACT MS (CEFIDITOREN PIVOXIL)0 (NOT SPECIFIED) [Suspect]
     Indication: CELLULITIS
     Dosage: (DF ORAL)
     Route: 048
     Dates: start: 20100706, end: 20100708

REACTIONS (2)
  - GENERALISED ERYTHEMA [None]
  - PRURITUS [None]
